FAERS Safety Report 4457892-X (Version None)
Quarter: 2004Q3

REPORT INFORMATION
  Report Type: 
  Country: None (occurrence: None)
  Receive Date: 20040924
  Receipt Date: 20040915
  Transmission Date: 20050211
  Serious: Yes (Death, Life-Threatening, Hospitalization, Other)
  Sender: FDA-Public Use
  Company Number: DE-JNJFOC-20040803503

PATIENT
  Sex: Female
  Weight: 46 kg

DRUGS (6)
  1. RISPERDAL [Suspect]
     Route: 049
  2. RISPERDAL [Suspect]
     Indication: DRUG USE FOR UNKNOWN INDICATION
     Route: 049
  3. COMTESS [Concomitant]
     Route: 049
  4. NACOM [Concomitant]
     Route: 049
  5. NACOM [Concomitant]
     Route: 049
  6. PARKINSAN [Concomitant]
     Route: 049

REACTIONS (17)
  - ASTHENIA [None]
  - CARDIAC FAILURE [None]
  - CONFUSIONAL STATE [None]
  - CONSTIPATION [None]
  - DYSPHAGIA [None]
  - DYSPNOEA [None]
  - FLUID INTAKE REDUCED [None]
  - HEART RATE INCREASED [None]
  - HEART RATE IRREGULAR [None]
  - HOARSENESS [None]
  - INJURY [None]
  - LOCALISED OEDEMA [None]
  - MEDICATION ERROR [None]
  - MUCOUS MEMBRANE DISORDER [None]
  - OLIGURIA [None]
  - REFUSAL OF TREATMENT BY PATIENT [None]
  - SOMNOLENCE [None]
